FAERS Safety Report 8184933-9 (Version None)
Quarter: 2012Q1

REPORT INFORMATION
  Report Type: 
  Country: None (occurrence: None)
  Receive Date: 20120305
  Receipt Date: 20120228
  Transmission Date: 20120608
  Serious: Yes (Death)
  Sender: FDA-Public Use
  Company Number: PE-GLAXOSMITHKLINE-A0968429A

PATIENT
  Sex: Female

DRUGS (2)
  1. FLUTICASONE PROPIONATE/SALMETEROL [Suspect]
     Indication: PNEUMONIA
     Dosage: 3PUFF PER DAY
     Route: 055
     Dates: start: 20110615, end: 20111101
  2. CONCURRENT MEDICATIONS [Concomitant]

REACTIONS (1)
  - PNEUMONIA [None]
